FAERS Safety Report 15255779 (Version 1)
Quarter: 2018Q3

REPORT INFORMATION
  Report Type: Spontaneous
  Country: US (occurrence: US)
  Receive Date: 20180718
  Receipt Date: 20180718
  Transmission Date: 20181010
  Serious: Yes (Death)
  Sender: FDA-Public Use
  Company Number: None

PATIENT
  Age: 73 Year
  Sex: Male

DRUGS (10)
  1. DEXAMETHASONE. [Concomitant]
     Active Substance: DEXAMETHASONE
  2. GABAPENTIN. [Concomitant]
     Active Substance: GABAPENTIN
  3. FARYDAK [Suspect]
     Active Substance: PANOBINOSTAT
     Indication: HYPERLIPIDAEMIA
     Route: 048
  4. OMEPRAAZOLE [Concomitant]
  5. PROMETHAZINE [Concomitant]
     Active Substance: PROMETHAZINE\PROMETHAZINE HYDROCHLORIDE
  6. ACYCLOVIR. [Concomitant]
     Active Substance: ACYCLOVIR
  7. CALTRATE [Concomitant]
     Active Substance: CALCIUM CARBONATE
  8. IRON [Concomitant]
     Active Substance: IRON
  9. OXYCODONE [Concomitant]
     Active Substance: OXYCODONE
  10. LEVOTHYROXIN [Concomitant]
     Active Substance: LEVOTHYROXINE

REACTIONS (1)
  - Death [None]

NARRATIVE: CASE EVENT DATE: 20180715
